FAERS Safety Report 18524238 (Version 1)
Quarter: 2020Q4

REPORT INFORMATION
  Report Type: Spontaneous
  Country: FR (occurrence: FR)
  Receive Date: 20201119
  Receipt Date: 20201119
  Transmission Date: 20210114
  Serious: Yes (Death)
  Sender: FDA-Public Use
  Company Number: FR-BEXIMCO-2020BEX00166

PATIENT
  Age: 35 Year
  Sex: Female

DRUGS (6)
  1. METFORMIN HYDROCHLORIDE. [Suspect]
     Active Substance: METFORMIN HYDROCHLORIDE
     Dosage: 1000 MG
     Route: 065
  2. RAMIPRIL. [Concomitant]
     Active Substance: RAMIPRIL
     Dosage: 10 MG
     Route: 065
  3. MIRTAZAPINE. [Concomitant]
     Active Substance: MIRTAZAPINE
     Dosage: 15 MG
     Route: 065
  4. PARACETAMOL [Concomitant]
     Active Substance: ACETAMINOPHEN
     Dosage: 500 MG
     Route: 065
  5. INSULIN DETEMIR [Concomitant]
     Active Substance: INSULIN DETEMIR
     Dosage: 100 U/ML
     Route: 065
  6. ATENOLOL. [Concomitant]
     Active Substance: ATENOLOL
     Dosage: 50 MG
     Route: 065

REACTIONS (1)
  - Toxicity to various agents [Fatal]
